FAERS Safety Report 18174496 (Version 1)
Quarter: 2020Q3

REPORT INFORMATION
  Report Type: Spontaneous
  Country: US (occurrence: US)
  Receive Date: 20200820
  Receipt Date: 20200820
  Transmission Date: 20201103
  Serious: Yes (Death)
  Sender: FDA-Public Use
  Company Number: None

PATIENT
  Age: 17 Year
  Sex: Male
  Weight: 141.7 kg

DRUGS (22)
  1. CEFTRIAXONE. [Concomitant]
     Active Substance: CEFTRIAXONE
     Dates: start: 20200806, end: 20200808
  2. ESMOLOL [Concomitant]
     Active Substance: ESMOLOL HYDROCHLORIDE
     Dates: start: 20200813, end: 20200813
  3. MANNITOL. [Concomitant]
     Active Substance: MANNITOL
     Dates: start: 20200813, end: 20200813
  4. SILTUXIMAB [Concomitant]
     Active Substance: SILTUXIMAB
     Dates: start: 20200813, end: 20200813
  5. ACYCLOVIR. [Concomitant]
     Active Substance: ACYCLOVIR
     Dates: start: 20200807, end: 20200813
  6. ANAKINRA [Concomitant]
     Active Substance: ANAKINRA
     Dates: start: 20200814, end: 20200817
  7. GRANISETRON [Concomitant]
     Active Substance: GRANISETRON
     Dates: start: 20200802, end: 20200816
  8. CEFEPIME [Concomitant]
     Active Substance: CEFEPIME HYDROCHLORIDE
     Dates: start: 20200809, end: 20200817
  9. CLONAZEPAM. [Concomitant]
     Active Substance: CLONAZEPAM
     Dates: start: 20200802, end: 20200813
  10. CYCLOPHOSPHAMIDE. [Concomitant]
     Active Substance: CYCLOPHOSPHAMIDE
     Dates: start: 20200804, end: 20200804
  11. ENOXAPARIN [Concomitant]
     Active Substance: ENOXAPARIN
     Dates: start: 20200802, end: 20200813
  12. FLUDARABINE [Concomitant]
     Active Substance: FLUDARABINE PHOSPHATE
     Dates: start: 20200802, end: 20200804
  13. FLUOXETINE [Concomitant]
     Active Substance: FLUOXETINE HYDROCHLORIDE
     Dates: start: 20200802, end: 20200813
  14. DEXAMETHASONE. [Concomitant]
     Active Substance: DEXAMETHASONE
     Dates: start: 20200813, end: 20200817
  15. TOCILIZUMAB. [Concomitant]
     Active Substance: TOCILIZUMAB
     Dates: start: 20200811, end: 20200813
  16. ECULIZUMAB [Concomitant]
     Active Substance: ECULIZUMAB
     Dates: start: 20200814, end: 20200814
  17. INSULIN [Concomitant]
     Active Substance: INSULIN NOS
     Dates: start: 20200802, end: 20200817
  18. LEVETIRACITAM [Concomitant]
     Active Substance: LEVETIRACETAM
     Dates: start: 20200804, end: 20200817
  19. GABAPENTIN. [Concomitant]
     Active Substance: GABAPENTIN
     Dates: start: 20200802, end: 20200813
  20. RUXOLITINIB [Concomitant]
     Active Substance: RUXOLITINIB
     Dates: start: 20200814, end: 20200817
  21. KYMRIAH [Suspect]
     Active Substance: TISAGENLECLEUCEL
     Indication: ACUTE LYMPHOCYTIC LEUKAEMIA RECURRENT
     Dosage: ?          OTHER FREQUENCY:ONCE;?
     Route: 042
     Dates: start: 20200806, end: 20200806
  22. ACETAMINOPHEN. [Concomitant]
     Active Substance: ACETAMINOPHEN
     Dates: start: 20200806, end: 20200817

REACTIONS (10)
  - Haemophagocytic lymphohistiocytosis [None]
  - Neuronal neuropathy [None]
  - Brain injury [None]
  - Cardiac arrest [None]
  - Lymphocyte adoptive therapy [None]
  - Cytokine release syndrome [None]
  - Coma [None]
  - Immune effector cell-associated neurotoxicity syndrome [None]
  - Encephalopathy [None]
  - Multiple organ dysfunction syndrome [None]

NARRATIVE: CASE EVENT DATE: 20200813
